FAERS Safety Report 7131302-6 (Version None)
Quarter: 2010Q4

REPORT INFORMATION
  Report Type: 
  Country: None (occurrence: None)
  Receive Date: 20101201
  Receipt Date: 20101118
  Transmission Date: 20110411
  Serious: Yes (Hospitalization)
  Sender: FDA-Public Use
  Company Number: GXKR2010IE13128

PATIENT
  Age: 57 Year
  Sex: Female

DRUGS (8)
  1. TACROLIMUS (NGX) [Interacting]
     Indication: IMMUNOSUPPRESSION
     Dosage: 3 MG, BID
     Route: 065
  2. TACROLIMUS (NGX) [Interacting]
     Dosage: 1 MG/0.5 MG
     Route: 065
  3. CLARITHROMYCIN [Suspect]
     Indication: PNEUMONIA
     Dosage: UNK
     Route: 065
  4. AMOXICILLIN [Concomitant]
     Indication: PNEUMONIA
     Route: 065
  5. PREDNISOLONE [Concomitant]
     Dosage: 10 MG
     Route: 065
  6. AZATHIOPRINE [Concomitant]
     Dosage: 75 MG DAILY
     Route: 065
  7. METHYLPREDNISOLONE [Concomitant]
     Route: 042
  8. TINZAPARIN [Concomitant]
     Indication: PULMONARY EMBOLISM

REACTIONS (10)
  - ACIDOSIS [None]
  - ANAEMIA [None]
  - DIALYSIS [None]
  - DRUG INTERACTION [None]
  - HAEMOLYTIC URAEMIC SYNDROME [None]
  - HYPERKALAEMIA [None]
  - PLASMAPHERESIS [None]
  - RENAL IMPAIRMENT [None]
  - THROMBOCYTOPENIA [None]
  - VENTRICULAR TACHYCARDIA [None]
